FAERS Safety Report 8305193-1 (Version None)
Quarter: 2012Q1

REPORT INFORMATION
  Report Type: 
  Country: None (occurrence: None)
  Receive Date: 20120326
  Receipt Date: 20110211
  Transmission Date: 20120608
  Serious: Yes (Other)
  Sender: FDA-Public Use
  Company Number: PHHY2011US10643

PATIENT
  Age: 45 Year
  Sex: Male
  Weight: 95 kg

DRUGS (3)
  1. NSAID'S (NO INGREDIENTS/SUBSTANCES) [Concomitant]
  2. ALLOPURINOL [Concomitant]
  3. TASIGNA [Suspect]
     Indication: CHRONIC MYELOID LEUKAEMIA
     Dosage: 400 MG, BID, ORAL ; 300 MG, BID, ORAL
     Route: 048
     Dates: start: 20110110

REACTIONS (1)
  - HYPERBILIRUBINAEMIA [None]
